FAERS Safety Report 6570971-6 (Version None)
Quarter: 2010Q1

REPORT INFORMATION
  Report Type: 
  Country: None (occurrence: None)
  Receive Date: 20100204
  Receipt Date: 20100125
  Transmission Date: 20100710
  Serious: Yes (Hospitalization, Other)
  Sender: FDA-Public Use
  Company Number: PHEH2009US16486

PATIENT
  Sex: Female

DRUGS (5)
  1. RECLAST [Suspect]
     Dosage: UNK
     Dates: start: 20090101, end: 20090101
  2. COUMADIN [Suspect]
     Dosage: UNK, UNK
     Route: 065
  3. CALCIUM [Concomitant]
     Dosage: UNK, UNK
     Route: 065
  4. VITAMINS [Concomitant]
     Dosage: UNK, UNK
     Route: 065
  5. ANTIHYPERTENSIVE DRUGS [Concomitant]
     Dosage: UNK, UNK
     Route: 065

REACTIONS (9)
  - FALL [None]
  - HYPOAESTHESIA [None]
  - HYPOKINESIA [None]
  - MULTIPLE MYELOMA [None]
  - PAIN IN EXTREMITY [None]
  - PARAESTHESIA [None]
  - PELVIC FRACTURE [None]
  - PLATELET COUNT DECREASED [None]
  - PULMONARY EMBOLISM [None]
